FAERS Safety Report 24398540 (Version 1)
Quarter: 2024Q4

REPORT INFORMATION
  Report Type: Spontaneous
  Country: GB (occurrence: GB)
  Receive Date: 20241004
  Receipt Date: 20241004
  Transmission Date: 20250114
  Serious: Yes (Other)
  Sender: REGENERON
  Company Number: GB-REGENERON PHARMACEUTICALS, INC.-2024-118690

PATIENT
  Age: 87 Year
  Sex: Male

DRUGS (2)
  1. LIBTAYO [Suspect]
     Active Substance: CEMIPLIMAB-RWLC
     Indication: Neoplasm malignant
     Dosage: 350 MG, Q3W
     Route: 042
     Dates: start: 20221209
  2. SULFASALAZINE [Concomitant]
     Active Substance: SULFASALAZINE
     Indication: Rheumatoid arthritis

REACTIONS (7)
  - Metastases to lung [Unknown]
  - Metastasis [Unknown]
  - Pneumonitis [Recovered/Resolved]
  - Disease recurrence [Unknown]
  - Hypercalcaemia [Recovered/Resolved]
  - Hypercalcaemia [Unknown]
  - Disease progression [Recovered/Resolved]

NARRATIVE: CASE EVENT DATE: 20230328
